FAERS Safety Report 17290170 (Version 1)
Quarter: 2020Q1

REPORT INFORMATION
  Report Type: Spontaneous
  Country: US (occurrence: US)
  Receive Date: 20200120
  Receipt Date: 20200120
  Transmission Date: 20200409
  Serious: Yes (Other)
  Sender: FDA-Public Use
  Company Number: PHHY2019US217478

PATIENT
  Age: 79 Year
  Sex: Male

DRUGS (1)
  1. PANTOPRAZOLE [Suspect]
     Active Substance: PANTOPRAZOLE
     Indication: OESOPHAGEAL ULCER
     Dosage: 40 MG, BID
     Route: 048

REACTIONS (3)
  - Subacute cutaneous lupus erythematosus [Unknown]
  - Rash pruritic [Recovered/Resolved]
  - Skin exfoliation [Unknown]
